FAERS Safety Report 8808551 (Version 1)
Quarter: 2012Q4

REPORT INFORMATION
  Report Type: Spontaneous
  Country: PL (occurrence: None)
  Receive Date: 20120920
  Receipt Date: 20120920
  Transmission Date: 20130627
  Serious: Yes (Other)
  Sender: FDA-Public Use
  Company Number: 16955205

PATIENT
  Age: 59 Year
  Sex: Female

DRUGS (6)
  1. GLUCOPHAGE [Suspect]
     Indication: TYPE 2 DIABETES MELLITUS
     Route: 048
     Dates: start: 20120616, end: 20120707
  2. AMARYL [Suspect]
     Dates: start: 20120710
  3. VENORUTON (VENORUTON) [Concomitant]
  4. ATENOLOL (ATENOLOL) [Concomitant]
  5. DIURESIN (INDAPAMIDE) [Concomitant]
  6. HEPARIN (HEPARIN) [Concomitant]

REACTIONS (4)
  - Stevens-Johnson syndrome [None]
  - Diarrhoea [None]
  - Arthropod sting [None]
  - Weight decreased [None]
